FAERS Safety Report 5027698-1 (Version None)
Quarter: 2006Q2

REPORT INFORMATION
  Report Type: 
  Country: None (occurrence: None)
  Receive Date: 20060428
  Receipt Date: 20060206
  Transmission Date: 20061013
  Serious: No
  Sender: FDA-Public Use
  Company Number: COT_0399_2006

PATIENT
  Age: 77 Year
  Sex: Female
  Weight: 52.1637 kg

DRUGS (8)
  1. VENTAVIS [Suspect]
     Indication: PULMONARY HYPERTENSION
     Dosage: 2.5 MCG 6XD IH
     Dates: start: 20060127, end: 20060206
  2. GLUCOPHAGE [Concomitant]
  3. NITROSTAT [Concomitant]
  4. TRACLEER [Concomitant]
  5. CARDIZEM [Concomitant]
  6. EVISTA [Concomitant]
  7. MEVACOR [Concomitant]
  8. SILDENAFIL [Concomitant]

REACTIONS (2)
  - CHEST PAIN [None]
  - PAIN IN EXTREMITY [None]
